FAERS Safety Report 8177161-4 (Version None)
Quarter: 2012Q1

REPORT INFORMATION
  Report Type: 
  Country: None (occurrence: None)
  Receive Date: 20120301
  Receipt Date: 20120220
  Transmission Date: 20120608
  Serious: Yes (Other)
  Sender: FDA-Public Use
  Company Number: JP-GLAXOSMITHKLINE-B0784846A

PATIENT
  Age: 33 Year
  Sex: Male

DRUGS (3)
  1. LAMIVUDINE (EPIVIR HBV) [Suspect]
     Indication: HEPATITIS B
     Route: 065
     Dates: start: 20080101
  2. ENTECAVIR [Suspect]
     Indication: HEPATITIS B
     Route: 065
     Dates: start: 20070901
  3. ADEFOVIR [Suspect]
     Indication: HEPATITIS B
     Route: 065
     Dates: start: 20080101

REACTIONS (3)
  - ALANINE AMINOTRANSFERASE INCREASED [None]
  - DRUG RESISTANCE [None]
  - HEPATITIS [None]
